FAERS Safety Report 6945008-7 (Version None)
Quarter: 2010Q3

REPORT INFORMATION
  Report Type: 
  Country: None (occurrence: None)
  Receive Date: 20100827
  Receipt Date: 20100820
  Transmission Date: 20110219
  Serious: Yes (Other)
  Sender: FDA-Public Use
  Company Number: US-JNJFOC-20100808138

PATIENT
  Sex: Female
  Weight: 99.79 kg

DRUGS (4)
  1. SIMPONI [Suspect]
     Indication: RHEUMATOID ARTHRITIS
     Route: 058
  2. PREDNISONE [Concomitant]
  3. WATER PILL NOS [Concomitant]
  4. PHOSPHATES [Concomitant]

REACTIONS (4)
  - ABSCESS [None]
  - BLOOD BLISTER [None]
  - DEVICE MALFUNCTION [None]
  - INJECTION SITE HAEMATOMA [None]
